FAERS Safety Report 13678267 (Version 1)
Quarter: 2017Q2

REPORT INFORMATION
  Report Type: Spontaneous
  Country: DE (occurrence: DE)
  Receive Date: 20170622
  Receipt Date: 20170622
  Transmission Date: 20170830
  Serious: Yes (Death, Other)
  Sender: FDA-Public Use
  Company Number: DE-MYLANLABS-2017M1037031

PATIENT

DRUGS (3)
  1. MITOMYCIN. [Suspect]
     Active Substance: MITOMYCIN
     Indication: ACINAR CELL CARCINOMA OF PANCREAS
     Dosage: 8 MG/M2 ON DAY 1; REPEATED ON DAY 29
     Route: 042
  2. GEMCITABINE [Suspect]
     Active Substance: GEMCITABINE\GEMCITABINE HYDROCHLORIDE
     Indication: ACINAR CELL CARCINOMA OF PANCREAS
     Dosage: 800 MG/M2 ON DAYS 1, 8, 15
     Route: 042
  3. GEMCITABINE [Suspect]
     Active Substance: GEMCITABINE\GEMCITABINE HYDROCHLORIDE
     Dosage: 1000 MG/M2
     Route: 042

REACTIONS (3)
  - Thrombocytopenia [Unknown]
  - Pulmonary oedema [Fatal]
  - Cardiac failure acute [Fatal]
